FAERS Safety Report 8158647-5 (Version None)
Quarter: 2012Q1

REPORT INFORMATION
  Report Type: 
  Country: None (occurrence: None)
  Receive Date: 20120217
  Receipt Date: 20120203
  Transmission Date: 20120608
  Serious: Yes (Hospitalization, Other)
  Sender: FDA-Public Use
  Company Number: CIP11003099

PATIENT
  Age: 76 Year
  Sex: Female

DRUGS (8)
  1. DIDRONEL [Suspect]
     Indication: OSTEOPOROSIS POSTMENOPAUSAL
     Dosage: 200 MG TWICE DAILY TIMES TWO WEEKS CYCLIC EVERY 10 WEEKS, ORAL
     Route: 048
     Dates: start: 19931221, end: 19951229
  2. ACTONEL [Suspect]
     Dosage: 35 MG ONCE WEEKLY, ORAL
     Route: 048
     Dates: start: 20021030, end: 20030101
  3. FOSAMAX [Suspect]
     Dosage: 10 MG DAILY, ORAL
     Route: 048
     Dates: start: 19951229, end: 20020701
  4. TAGAMET [Concomitant]
  5. CYTOTEC [Concomitant]
  6. VOLTAREN [Concomitant]
  7. BONIVA [Suspect]
     Dosage: 150 MG ONCE MONTHLY, ORAL
     Route: 048
     Dates: start: 20051229, end: 20090401
  8. RANITIDINE HYDROCHLORIDE [Concomitant]

REACTIONS (19)
  - FALL [None]
  - ABDOMINAL DISCOMFORT [None]
  - FRACTURE DELAYED UNION [None]
  - BURSITIS [None]
  - HYPERPARATHYROIDISM [None]
  - DEEP VEIN THROMBOSIS [None]
  - PAIN IN EXTREMITY [None]
  - PARATHYROID TUMOUR BENIGN [None]
  - FEMUR FRACTURE [None]
  - FRACTURE DISPLACEMENT [None]
  - LOW TURNOVER OSTEOPATHY [None]
  - STRESS FRACTURE [None]
  - HAEMATOMA [None]
  - GAIT DISTURBANCE [None]
  - SOFT TISSUE DISORDER [None]
  - OEDEMA PERIPHERAL [None]
  - MUSCULAR WEAKNESS [None]
  - MYOPATHY [None]
  - SCAR [None]
